FAERS Safety Report 13499617 (Version 5)
Quarter: 2019Q1

REPORT INFORMATION
  Report Type: Report from Study
  Country: JP (occurrence: JP)
  Receive Date: 20170501
  Receipt Date: 20190319
  Transmission Date: 20190417
  Serious: Yes (Life-Threatening, Hospitalization, Other)
  Sender: FDA-Public Use
  Company Number: PHJP2017JP014524

PATIENT
  Age: 39 Year
  Sex: Male

DRUGS (2)
  1. ZYKADIA [Suspect]
     Active Substance: CERITINIB
     Indication: NON-SMALL CELL LUNG CANCER STAGE IV
     Dosage: 750 MG, QD
     Route: 048
     Dates: start: 20161209, end: 20170822
  2. DENOTAS [Concomitant]
     Active Substance: CALCIUM CARBONATE\CHOLECALCIFEROL\MAGNESIUM CARBONATE
     Indication: METASTASES TO BONE
     Dosage: 2 DF, UNK
     Route: 048

REACTIONS (13)
  - Pleural effusion [Recovering/Resolving]
  - Hyperuricaemia [Recovering/Resolving]
  - Pericardial effusion [Recovering/Resolving]
  - Diarrhoea [Recovering/Resolving]
  - Vomiting [Recovering/Resolving]
  - Nausea [Recovering/Resolving]
  - Malignant neoplasm progression [Recovering/Resolving]
  - Concomitant disease progression [Recovering/Resolving]
  - Pericarditis malignant [Recovering/Resolving]
  - Cardiac tamponade [Recovering/Resolving]
  - Concomitant disease progression [Recovering/Resolving]
  - Hepatic function abnormal [Recovering/Resolving]
  - Non-small cell lung cancer stage IV [Recovering/Resolving]

NARRATIVE: CASE EVENT DATE: 20161211
